FAERS Safety Report 11691123 (Version 1)
Quarter: 2015Q4

REPORT INFORMATION
  Report Type: Spontaneous
  Country: BR (occurrence: BR)
  Receive Date: 20151102
  Receipt Date: 20151102
  Transmission Date: 20160304
  Serious: Yes (Hospitalization, Other)
  Sender: FDA-Public Use
  Company Number: BR-PFIZER INC-2015365394

PATIENT
  Age: 62 Year
  Sex: Female
  Weight: 70 kg

DRUGS (3)
  1. EFFEXOR XR [Suspect]
     Active Substance: VENLAFAXINE HYDROCHLORIDE
     Indication: DEPRESSION
     Dosage: 150 MG, 1X/DAY
     Route: 048
     Dates: start: 20120917
  2. FENERGAN /00033001/ [Concomitant]
     Indication: HYPERSENSITIVITY
     Dosage: UNSPECIFIED DOSE, 1X/DAY
     Dates: start: 201510
  3. AMPLICTIL /00011901/ [Concomitant]
     Indication: SLEEP DISORDER
     Dosage: 25 MG, 1X/DAY
     Dates: start: 201510

REACTIONS (2)
  - Toxicity to various agents [Unknown]
  - Dependence [Unknown]

NARRATIVE: CASE EVENT DATE: 2015
